FAERS Safety Report 15673808 (Version 1)
Quarter: 2018Q4

REPORT INFORMATION
  Report Type: Spontaneous
  Country: US (occurrence: US)
  Receive Date: 20181129
  Receipt Date: 20181129
  Transmission Date: 20190205
  Serious: Yes (Hospitalization)
  Sender: FDA-Public Use
  Company Number: US-PFIZER INC-2016143579

PATIENT
  Age: 77 Year
  Sex: Male

DRUGS (29)
  1. LYRICA [Suspect]
     Active Substance: PREGABALIN
     Indication: DIABETIC NEUROPATHY
     Dosage: 50 MG, 2X/DAY (TAKE 1 CAPSULE (50MG TOTAL) BY MOUTH 2 (TWO) TIMES A DAY, MAX DAILY 100MG)
     Route: 048
     Dates: start: 20160205
  2. LYRICA [Suspect]
     Active Substance: PREGABALIN
     Indication: HYPERGLYCAEMIA
     Dosage: 50 MG, 2X/DAY (TAKE 1 CAPSULE (50MG TOTAL) BY MOUTH 2 (TWO) TIMES A DAY, MAX DAILY 100MG)
     Route: 048
     Dates: start: 20170105
  3. XOPENEX [Concomitant]
     Active Substance: LEVALBUTEROL HYDROCHLORIDE
     Dosage: 0.63 MG, 4X/DAY (TAKE 0.63 MG BY NEBULIZATION EVERY 6 (SIX) HOURS)
     Route: 045
  4. BETAPACE [Concomitant]
     Active Substance: SOTALOL HYDROCHLORIDE
     Dosage: 120 MG, 2X/DAY (TAKE 1 TABLET (120MG TOTAL) BY MOUTH 2 (TWO) TIMES A DAY)
  5. METOPROLOL. [Concomitant]
     Active Substance: METOPROLOL
     Dosage: UNK
  6. LYRICA [Suspect]
     Active Substance: PREGABALIN
     Dosage: 50 MG, 2X/DAY (TAKE 1 CAPSULE (50MG TOTAL) BY MOUTH 2 (TWO) TIMES A DAY, MAX DAILY 100MG)
     Route: 048
     Dates: start: 20170322
  7. LYRICA [Suspect]
     Active Substance: PREGABALIN
     Dosage: 50 MG, 2X/DAY (TAKE 1 CAPSULE (50MG TOTAL) BY MOUTH 2 (TWO) TIMES A DAY, MAX DAILY 100MG)
     Route: 048
     Dates: start: 20170914
  8. PRADAXA [Concomitant]
     Active Substance: DABIGATRAN ETEXILATE MESYLATE
     Dosage: 150 MG, 2X/DAY (TAKE 1 CAPSULE (150MG TOTAL) BY MOUTH 2 (TWO) TIMES A DAY)
     Route: 048
  9. HUMALOG [Concomitant]
     Active Substance: INSULIN LISPRO
     Dosage: UNK (INSULIN PUMP)
     Route: 042
  10. SYNTHROID [Concomitant]
     Active Substance: LEVOTHYROXINE SODIUM
     Dosage: 88 UG, DAILY (TAKE 1 TABLET (88 MCG TOTAL) BY MOUTH DAILY)
     Route: 048
  11. ALBUTEROL SULFATE. [Concomitant]
     Active Substance: ALBUTEROL SULFATE
     Dosage: 3 ML, UNK
     Route: 045
  12. ALBUTEROL SULFATE. [Concomitant]
     Active Substance: ALBUTEROL SULFATE
     Dosage: 0.5 ML, UNK
     Route: 045
  13. LYRICA [Suspect]
     Active Substance: PREGABALIN
     Dosage: 50 MG, 2X/DAY (TAKE 1 CAPSULE (50MG TOTAL) BY MOUTH 2 (TWO) TIMES A DAY, MAX DAILY 100MG)
     Route: 048
     Dates: start: 20170605
  14. LYRICA [Suspect]
     Active Substance: PREGABALIN
     Dosage: 50 MG, 2X/DAY (1 IN THE MORNING 2 AT NIGHT)
     Route: 048
  15. DILACOR XR [Concomitant]
     Active Substance: DILTIAZEM HYDROCHLORIDE
     Dosage: UNK
  16. PROSCAR [Concomitant]
     Active Substance: FINASTERIDE
     Dosage: 5 MG, DAILY (TAKE 1 TABLET BY MOUTH DAILY)
     Route: 048
  17. THEO-DUR [Concomitant]
     Active Substance: THEOPHYLLINE ANHYDROUS
     Dosage: UNK
  18. PROVENTIL HFA [SALBUTAMOL] [Concomitant]
     Indication: WHEEZING
     Dosage: UNK UNK, 4X/DAY (INHALE 1-2 PUFFS INTO THE LUNG EVERY 6 (SIX) HOURS AS NEEDED)
     Route: 055
  19. CARDIZEM [DILTIAZEM] [Concomitant]
     Dosage: 120 MG, 3X/DAY (TAKE 1 TABLET (120 MG TOTAL) BY MOUTH 3 (THREE) TIMES A DAY)
     Route: 048
  20. MEVACOR [Concomitant]
     Active Substance: LOVASTATIN
     Dosage: 20 MG, DAILY
     Route: 048
  21. PREDNISONE. [Concomitant]
     Active Substance: PREDNISONE
     Dosage: UNK
  22. VITAMIN B12 [Concomitant]
     Active Substance: CYANOCOBALAMIN
     Dosage: 1000 UG, DAILY (TAKE 1000MCG BY MOUTH DAILY)
     Route: 048
  23. VENTOLIN HFA [Concomitant]
     Active Substance: ALBUTEROL SULFATE
     Dosage: UNK UNK, 4X/DAY (INHALE 1-2 PUFFS INTO THE LUNG EVERY 6 (SIX) HOURS AS NEEDED)
     Route: 055
  24. NOVOLOG [Concomitant]
     Active Substance: INSULIN ASPART
     Dosage: 76.65 IU, DAILY (USE VIA INSULIN PUMP AVERAGE DAILY INSULIN IS 76.65 UNITS. E11.49)
     Route: 042
  25. LYRICA [Suspect]
     Active Substance: PREGABALIN
     Indication: TYPE 2 DIABETES MELLITUS
     Dosage: 50 MG, 2X/DAY (TAKE 1 CAPSULE (50MG TOTAL) BY MOUTH 2 (TWO) TIMES A DAY, MAX DAILY 100MG)
     Route: 048
     Dates: start: 20160708
  26. VITAMIN D [Concomitant]
     Active Substance: CHOLECALCIFEROL
     Dosage: UNK
  27. ADVAIR HFA [Concomitant]
     Active Substance: FLUTICASONE PROPIONATE\SALMETEROL XINAFOATE
     Dosage: UNK
  28. LASIX [Concomitant]
     Active Substance: FUROSEMIDE
     Dosage: 40 MG, DAILY
     Route: 048
  29. VITAMIN D3 [Concomitant]
     Active Substance: CHOLECALCIFEROL
     Dosage: 1000 IU, DAILY
     Route: 048

REACTIONS (1)
  - Lung disorder [Unknown]
